FAERS Safety Report 4526502-5 (Version None)
Quarter: 2004Q4

REPORT INFORMATION
  Report Type: 
  Country: None (occurrence: None)
  Receive Date: 20041214
  Receipt Date: 20041206
  Transmission Date: 20050328
  Serious: Yes (Hospitalization)
  Sender: FDA-Public Use
  Company Number: US-MERCK-0412USA00753

PATIENT
  Age: 57 Year
  Sex: Female

DRUGS (2)
  1. VIOXX [Suspect]
     Indication: LOCALISED OSTEOARTHRITIS
     Route: 048
     Dates: end: 20030101
  2. TEMAZEPAM [Concomitant]
     Route: 065

REACTIONS (6)
  - BURNING SENSATION [None]
  - CHEST PAIN [None]
  - FLUSHING [None]
  - HYPERHIDROSIS [None]
  - PARAESTHESIA [None]
  - VISION BLURRED [None]
